FAERS Safety Report 10418187 (Version 3)
Quarter: 2014Q4

REPORT INFORMATION
  Report Type: Spontaneous
  Country: MX (occurrence: MX)
  Receive Date: 20140829
  Receipt Date: 20141003
  Transmission Date: 20150528
  Serious: Yes (Hospitalization)
  Sender: FDA-Public Use
  Company Number: MX-NOVOPROD-420424

PATIENT
  Age: 32 Year
  Sex: Female
  Weight: 44.5 kg

DRUGS (4)
  1. METFORMIN [Concomitant]
     Active Substance: METFORMIN HYDROCHLORIDE
     Indication: TYPE 1 DIABETES MELLITUS
     Dosage: 750 MG, BID
     Route: 065
     Dates: start: 201401, end: 201408
  2. NOVORAPID [Suspect]
     Active Substance: INSULIN ASPART
     Indication: TYPE 1 DIABETES MELLITUS
     Dosage: 1 IU / 15 G OF CARBOHYDRATE CONSUMED
     Route: 065
     Dates: start: 20140801
  3. TRADJENTA [Concomitant]
     Active Substance: LINAGLIPTIN
     Indication: TYPE 1 DIABETES MELLITUS
     Dosage: 5 MG, QD
     Route: 065
     Dates: start: 201402, end: 20140806
  4. TRESIBA FLEXTOUCH [Suspect]
     Active Substance: INSULIN DEGLUDEC
     Indication: TYPE 1 DIABETES MELLITUS
     Dosage: 6 IU, QD
     Route: 065
     Dates: start: 20140723

REACTIONS (1)
  - Hepatitis [Not Recovered/Not Resolved]

NARRATIVE: CASE EVENT DATE: 20140801
